FAERS Safety Report 5889202-5 (Version None)
Quarter: 2008Q3

REPORT INFORMATION
  Report Type: 
  Country: None (occurrence: None)
  Receive Date: 20080917
  Receipt Date: 20080911
  Transmission Date: 20090109
  Serious: Yes (Hospitalization, Other)
  Sender: FDA-Public Use
  Company Number: 2008SP014532

PATIENT
  Age: 43 Year
  Sex: Female

DRUGS (4)
  1. PEG-INTRON [Suspect]
     Indication: HEPATITIS C
     Dates: start: 20080620, end: 20080706
  2. PEG-INTRON [Suspect]
     Indication: HEPATITIS C
     Dates: start: 20080714
  3. REBETOL [Suspect]
     Indication: HEPATITIS C
     Dosage: PO, PO
     Route: 048
     Dates: start: 20080620, end: 20080706
  4. REBETOL [Suspect]
     Indication: HEPATITIS C
     Dosage: PO, PO
     Route: 048
     Dates: start: 20080714

REACTIONS (13)
  - ARTHRITIS [None]
  - BLOOD POTASSIUM DECREASED [None]
  - BLOOD PRESSURE DECREASED [None]
  - BLOOD SODIUM DECREASED [None]
  - CONDITION AGGRAVATED [None]
  - DYSPNOEA [None]
  - HYPERHIDROSIS [None]
  - NAUSEA [None]
  - PLATELET COUNT DECREASED [None]
  - PULMONARY THROMBOSIS [None]
  - RED BLOOD CELL COUNT DECREASED [None]
  - THIRST [None]
  - WHITE BLOOD CELL COUNT DECREASED [None]
